FAERS Safety Report 11749219 (Version 1)
Quarter: 2015Q4

REPORT INFORMATION
  Report Type: Report from Study
  Country: US (occurrence: US)
  Receive Date: 20151118
  Receipt Date: 20151118
  Transmission Date: 20160304
  Serious: Yes (Other)
  Sender: FDA-Public Use
  Company Number: PHEH2015US023322

PATIENT
  Age: 35 Year
  Sex: Female
  Weight: 87.71 kg

DRUGS (6)
  1. MIRENA [Concomitant]
     Active Substance: LEVONORGESTREL
     Indication: PRODUCT USED FOR UNKNOWN INDICATION
     Dosage: UNK
     Route: 065
  2. GABAPENTIN. [Concomitant]
     Active Substance: GABAPENTIN
     Indication: PRODUCT USED FOR UNKNOWN INDICATION
     Dosage: UNK
     Route: 065
  3. VITAMIN D [Concomitant]
     Active Substance: CHOLECALCIFEROL
     Indication: PRODUCT USED FOR UNKNOWN INDICATION
     Dosage: UNK
     Route: 065
  4. AMANTADINE [Concomitant]
     Active Substance: AMANTADINE
     Indication: PRODUCT USED FOR UNKNOWN INDICATION
     Dosage: UNK
     Route: 065
  5. GILENYA [Suspect]
     Active Substance: FINGOLIMOD HYDROCHLORIDE
     Indication: MULTIPLE SCLEROSIS
     Dosage: 0.5 MG, QD
     Route: 048
     Dates: start: 20120530
  6. FLONASE [Concomitant]
     Active Substance: FLUTICASONE PROPIONATE
     Indication: PRODUCT USED FOR UNKNOWN INDICATION
     Dosage: UNK
     Route: 065

REACTIONS (32)
  - Dizziness [Unknown]
  - Dyskinesia [Unknown]
  - Emotional disorder [Unknown]
  - Constipation [Unknown]
  - Neck pain [Unknown]
  - Insomnia [Unknown]
  - Restless legs syndrome [Unknown]
  - Musculoskeletal stiffness [Unknown]
  - Temperature intolerance [Unknown]
  - Aspartate aminotransferase decreased [Unknown]
  - Formication [Unknown]
  - Weight decreased [Unknown]
  - Multiple sclerosis relapse [Unknown]
  - Fatigue [Unknown]
  - Memory impairment [Unknown]
  - Cognitive disorder [Unknown]
  - Muscle spasticity [Unknown]
  - Burning sensation [Unknown]
  - Paraesthesia [Unknown]
  - Hypoaesthesia [Unknown]
  - Pain in extremity [Unknown]
  - Antinuclear antibody positive [Unknown]
  - Cervical dysplasia [Unknown]
  - Balance disorder [Unknown]
  - Gait disturbance [Unknown]
  - Muscular weakness [Unknown]
  - Genital herpes [Unknown]
  - Anxiety [Unknown]
  - Crying [Unknown]
  - Anion gap decreased [Unknown]
  - Central nervous system lesion [Unknown]
  - Blood thyroid stimulating hormone increased [Unknown]

NARRATIVE: CASE EVENT DATE: 20131120
